FAERS Safety Report 16032293 (Version 1)
Quarter: 2019Q1

REPORT INFORMATION
  Report Type: Spontaneous
  Country: US (occurrence: US)
  Receive Date: 20190304
  Receipt Date: 20190304
  Transmission Date: 20190418
  Serious: No
  Sender: FDA-Public Use
  Company Number: US-ASTRAZENECA-2019SE30852

PATIENT

DRUGS (3)
  1. IBRANCE [Suspect]
     Active Substance: PALBOCICLIB
     Indication: BREAST CANCER
     Route: 048
     Dates: start: 20171109
  2. IBRANCE [Suspect]
     Active Substance: PALBOCICLIB
     Indication: METASTASIS
     Route: 048
     Dates: start: 20171109
  3. OMEPRAZOLE. [Suspect]
     Active Substance: OMEPRAZOLE
     Route: 048

REACTIONS (7)
  - Drug ineffective [Unknown]
  - Stomatitis [Unknown]
  - Sneezing [Unknown]
  - Abdominal discomfort [Unknown]
  - Dyspepsia [Unknown]
  - Musculoskeletal chest pain [Unknown]
  - Rash [Unknown]
